FAERS Safety Report 10003948 (Version 1)
Quarter: 2014Q1

REPORT INFORMATION
  Report Type: Spontaneous
  Country: US (occurrence: US)
  Receive Date: 20140312
  Receipt Date: 20140312
  Transmission Date: 20141002
  Serious: Yes (Other)
  Sender: FDA-Public Use
  Company Number: US-LUNDBECK-DKLU1094830

PATIENT
  Age: 4 Year
  Sex: Male

DRUGS (2)
  1. ONFI [Suspect]
     Indication: CONVULSION
  2. ONFI [Suspect]

REACTIONS (1)
  - Convulsion [Unknown]
